FAERS Safety Report 9266075 (Version 8)
Quarter: 2014Q4

REPORT INFORMATION
  Report Type: Spontaneous
  Country: US (occurrence: US)
  Receive Date: 20130501
  Receipt Date: 20141229
  Transmission Date: 20150529
  Serious: Yes (Hospitalization, Disabling, Other)
  Sender: FDA-Public Use
  Company Number: US-009507513-1305USA000105

PATIENT
  Sex: Female
  Weight: 63.49 kg

DRUGS (5)
  1. LISINOPRIL. [Concomitant]
     Active Substance: LISINOPRIL
     Indication: HYPERTENSION
     Dosage: UNK
     Dates: start: 200009
  2. ALENDRONATE SODIUM. [Suspect]
     Active Substance: ALENDRONATE SODIUM
     Indication: OSTEOPOROSIS
     Dosage: 10 MG, UNK
     Route: 048
     Dates: start: 20080123, end: 20110301
  3. FOSAMAX [Suspect]
     Active Substance: ALENDRONATE SODIUM
     Indication: OSTEOPOROSIS
     Dosage: 10 MG, UNK
     Route: 048
     Dates: start: 20030105, end: 20080123
  4. FOSAMAX [Suspect]
     Active Substance: ALENDRONATE SODIUM
     Indication: OSTEOPENIA
  5. EVISTA [Concomitant]
     Active Substance: RALOXIFENE HYDROCHLORIDE
     Indication: BONE DISORDER
     Dosage: UNK
     Dates: start: 199809, end: 201206

REACTIONS (25)
  - Intramedullary rod insertion [Recovering/Resolving]
  - Deep vein thrombosis [Unknown]
  - Osteoarthritis [Unknown]
  - Ankle operation [Unknown]
  - Femur fracture [Unknown]
  - Chronic kidney disease [Unknown]
  - Thyroidectomy [Unknown]
  - Kyphosis [Unknown]
  - Foot fracture [Unknown]
  - Femur fracture [Recovered/Resolved]
  - Hypoacusis [Unknown]
  - Tooth extraction [Unknown]
  - Tooth extraction [Unknown]
  - Depression [Unknown]
  - Tonsillectomy [Unknown]
  - Hypersensitivity [Unknown]
  - Osteoporosis [Unknown]
  - Back pain [Not Recovered/Not Resolved]
  - Low turnover osteopathy [Not Recovered/Not Resolved]
  - Removal of internal fixation [Recovered/Resolved]
  - Scoliosis [Unknown]
  - Cardiac murmur [Unknown]
  - Hypercholesterolaemia [Unknown]
  - Anxiety [Unknown]
  - Fracture delayed union [Recovered/Resolved]

NARRATIVE: CASE EVENT DATE: 20070128
